FAERS Safety Report 24689223 (Version 1)
Quarter: 2024Q4

REPORT INFORMATION
  Report Type: Spontaneous
  Country: BE (occurrence: BE)
  Receive Date: 20241203
  Receipt Date: 20241203
  Transmission Date: 20250114
  Serious: Yes (Other)
  Sender: JOHNSON AND JOHNSON
  Company Number: None

PATIENT
  Age: 6 Year
  Sex: Male

DRUGS (1)
  1. RISPERDAL [Suspect]
     Active Substance: RISPERIDONE
     Indication: Product used for unknown indication
     Dosage: JUST STARTED AGAIN WITH RISPERDAL, NORMALLY 0.5 MG, BUT THERE WAS 10 ML ADMINISTERED
     Route: 048

REACTIONS (3)
  - Coma [Not Recovered/Not Resolved]
  - Hypotension [Not Recovered/Not Resolved]
  - Overdose [Not Recovered/Not Resolved]
